FAERS Safety Report 8600377-7 (Version None)
Quarter: 2012Q3

REPORT INFORMATION
  Report Type: 
  Country: None (occurrence: None)
  Receive Date: 20120817
  Receipt Date: 20120814
  Transmission Date: 20120928
  Serious: No
  Sender: FDA-Public Use
  Company Number: US-PFIZER INC-2012049976

PATIENT
  Sex: Male

DRUGS (2)
  1. NITROSTAT [Suspect]
     Indication: CHEST PAIN
     Dosage: 0.4 MG, AS NEEDED
     Route: 060
     Dates: start: 20120201, end: 20120221
  2. NITROGLYCERIN [Suspect]
     Dosage: 0.4 MG, AS NEEDED
     Dates: start: 20120221

REACTIONS (2)
  - DRUG INEFFECTIVE [None]
  - HEADACHE [None]
